FAERS Safety Report 5952410-9 (Version None)
Quarter: 2008Q4

REPORT INFORMATION
  Report Type: 
  Country: None (occurrence: None)
  Receive Date: 20081113
  Receipt Date: 20081104
  Transmission Date: 20090506
  Serious: Yes (Other)
  Sender: FDA-Public Use
  Company Number: UY-PFIZER INC-2008092341

PATIENT
  Sex: Female
  Weight: 48 kg

DRUGS (3)
  1. CHAMPIX [Suspect]
     Indication: SMOKING CESSATION THERAPY
     Route: 048
  2. ENALAPRIL MALEATE [Concomitant]
     Route: 048
     Dates: start: 20040101
  3. ATORVASTATIN CALCIUM [Concomitant]
     Route: 048
     Dates: start: 20040101

REACTIONS (3)
  - ABDOMINAL DISCOMFORT [None]
  - DRUG HYPERSENSITIVITY [None]
  - SUFFOCATION FEELING [None]
